FAERS Safety Report 16354539 (Version 1)
Quarter: 2019Q2

REPORT INFORMATION
  Report Type: Report from Study
  Country: DE (occurrence: DE)
  Receive Date: 20190524
  Receipt Date: 20190524
  Transmission Date: 20190711
  Serious: Yes (Hospitalization, Other)
  Sender: FDA-Public Use
  Company Number: DE-PFIZER INC-2019217428

PATIENT
  Age: 67 Year
  Sex: Male
  Weight: 84 kg

DRUGS (16)
  1. IRINOTECAN HCL [Suspect]
     Active Substance: IRINOTECAN HYDROCHLORIDE
     Dosage: 152 MG, EVERY 3 WEEKS
     Route: 042
     Dates: start: 20150107, end: 20150107
  2. FLUOROURACIL. [Suspect]
     Active Substance: FLUOROURACIL
     Dosage: 3800 MG, EVERY 3 WEEKS
     Route: 041
     Dates: start: 20150107, end: 20150107
  3. ACTRAPID [Concomitant]
     Active Substance: INSULIN HUMAN
     Indication: DIABETES MELLITUS
     Route: 058
  4. IRINOTECAN HCL [Suspect]
     Active Substance: IRINOTECAN HYDROCHLORIDE
     Indication: COLORECTAL CANCER
     Dosage: 152 MG, WEEKLY (DATE OF MOST RECENT DOSE ALSO REPORTED 28AUG2014)
     Route: 042
     Dates: start: 20140801, end: 20141217
  5. FOLINIC ACID [Concomitant]
     Active Substance: LEUCOVORIN
     Dosage: 900 MG, WEEKLY
     Route: 042
     Dates: start: 20141203, end: 20141210
  6. IRINOTECAN HCL [Suspect]
     Active Substance: IRINOTECAN HYDROCHLORIDE
     Dosage: 80 MG/M2 (136-152MG)
     Route: 042
     Dates: start: 20150330, end: 20150407
  7. FLUOROURACIL. [Suspect]
     Active Substance: FLUOROURACIL
     Dosage: 3800 MG, WEEKLY
     Route: 041
     Dates: start: 20140806, end: 20141217
  8. CETUXIMAB. [Suspect]
     Active Substance: CETUXIMAB
     Indication: COLORECTAL CANCER
     Dosage: 250 MG, (425)
     Route: 042
     Dates: start: 20150330, end: 20150407
  9. LEVEMIR [Concomitant]
     Active Substance: INSULIN DETEMIR
     Indication: DIABETES MELLITUS
     Dosage: 1, AS NEEDED
     Route: 058
  10. FOLINIC ACID [Concomitant]
     Active Substance: LEUCOVORIN
     Dosage: 950 MG, WEEKLY
     Route: 042
     Dates: start: 20141217
  11. FLUOROURACIL. [Suspect]
     Active Substance: FLUOROURACIL
     Indication: COLORECTAL CANCER
     Dosage: 950 MG, WEEKLY
     Route: 040
     Dates: start: 20140801, end: 20140801
  12. FOLINIC ACID [Concomitant]
     Active Substance: LEUCOVORIN
     Dosage: 950 MG, WEEKLY
     Route: 042
     Dates: start: 20140806, end: 20141126
  13. FOLINIC ACID [Concomitant]
     Active Substance: LEUCOVORIN
     Dosage: 950 MG, EVERY 3 WEEKS
     Route: 042
     Dates: start: 20150107, end: 20150107
  14. METFORMIN [Concomitant]
     Active Substance: METFORMIN HYDROCHLORIDE
     Indication: DIABETES MELLITUS
     Dosage: 100 MG, 1X/DAY
     Route: 048
  15. BEVACIZUMAB. [Suspect]
     Active Substance: BEVACIZUMAB
     Indication: COLORECTAL CANCER METASTATIC
     Dosage: 5 MG/KG, EVERY 2 WEEKS
     Route: 042
     Dates: start: 20140807, end: 20150205
  16. FOLINIC ACID [Concomitant]
     Active Substance: LEUCOVORIN
     Indication: COLORECTAL CANCER
     Dosage: 380 MG, WEEKLY
     Route: 042
     Dates: start: 20140801, end: 20140801

REACTIONS (8)
  - Faecaloma [Recovered/Resolved]
  - Pelvic abscess [Recovered/Resolved]
  - Rectal abscess [Recovered/Resolved]
  - Rectal stenosis [Recovered/Resolved]
  - Subileus [Recovered/Resolved]
  - Renal failure [Recovered/Resolved]
  - Oedema peripheral [Recovered/Resolved]
  - Diarrhoea [Recovered/Resolved]

NARRATIVE: CASE EVENT DATE: 20140902
